FAERS Safety Report 9513689 (Version 2)
Quarter: 2013Q4

REPORT INFORMATION
  Report Type: Spontaneous
  Country: US (occurrence: US)
  Receive Date: 20130910
  Receipt Date: 20131105
  Transmission Date: 20140711
  Serious: Yes (Hospitalization, Other)
  Sender: FDA-Public Use
  Company Number: US-BAYER-2013-108395

PATIENT
  Age: 87 Year
  Sex: Female
  Weight: 63.95 kg

DRUGS (14)
  1. ALEVE TABLET [Suspect]
     Indication: BACK PAIN
     Dosage: 1 DF, PRN
     Route: 048
     Dates: start: 2009, end: 20130901
  2. ONE A DAY WOMEN^S [Concomitant]
  3. PRILOSEC [Concomitant]
  4. METOPROLOL [Concomitant]
     Dosage: 1 DF, BID
     Route: 048
  5. FISH OIL [Concomitant]
  6. LEVOTHYROXINE [Concomitant]
     Dosage: 1 DF, QD
     Route: 048
  7. GLUCOSAMINE [Concomitant]
  8. CALCIUM [Concomitant]
  9. CETIRIZINE HYDROCHLORIDE [Concomitant]
  10. CLONIDINE [Concomitant]
     Dosage: 1 DF, BID
     Route: 048
  11. PERCOCET [OXYCODONE HYDROCHLORIDE,PARACETAMOL] [Concomitant]
     Indication: PAIN
     Dosage: 1DF 2 TIMES A DAY AS NEEDED
     Route: 048
  12. OMEPRAZOLE [Concomitant]
     Dosage: 1 DF, QD 30 MIM BEFORE BREAKFAST
     Route: 048
  13. CALCITONIN [Concomitant]
     Dosage: 1 PUFF(S), QD
     Route: 045
  14. FLUTICASONE [Concomitant]
     Dosage: 2 PUFF(S), QD
     Route: 045

REACTIONS (24)
  - Loss of consciousness [Recovered/Resolved]
  - Dizziness [Recovered/Resolved]
  - Pruritus [Recovered/Resolved]
  - Hyperhidrosis [Recovered/Resolved]
  - Erythema [Recovered/Resolved]
  - Nausea [Recovered/Resolved]
  - Foaming at mouth [Recovered/Resolved]
  - Chills [Recovered/Resolved]
  - Faecal incontinence [Recovered/Resolved]
  - Contusion [Recovered/Resolved]
  - Hyperhidrosis [Recovered/Resolved]
  - Pruritus [Recovered/Resolved]
  - Erythema [Recovered/Resolved]
  - Burning sensation [Recovered/Resolved]
  - Feeling cold [Recovered/Resolved]
  - Foaming at mouth [Recovered/Resolved]
  - Abdominal pain upper [Recovered/Resolved]
  - Expired drug administered [None]
  - Muscular weakness [Not Recovered/Not Resolved]
  - Pain in extremity [Not Recovered/Not Resolved]
  - Local swelling [Not Recovered/Not Resolved]
  - Laceration [None]
  - Local swelling [None]
  - Tremor [None]
